FAERS Safety Report 5814734-5 (Version None)
Quarter: 2008Q3

REPORT INFORMATION
  Report Type: 
  Country: None (occurrence: None)
  Receive Date: 20080718
  Receipt Date: 20070822
  Transmission Date: 20090109
  Serious: No
  Sender: FDA-Public Use
  Company Number: US-KINGPHARMUSA00001-K200600534

PATIENT

DRUGS (14)
  1. LEVOXYL [Suspect]
     Indication: HYPOTHYROIDISM
     Dosage: 12.5 MCG, QD
     Route: 048
     Dates: start: 20050901
  2. LEVOXYL [Suspect]
     Dosage: 25 MCG, QD
     Route: 048
  3. LEVOXYL [Suspect]
     Dosage: 37.5 MCG, QD
     Route: 048
  4. LEVOXYL [Suspect]
     Dosage: 50 MCG, QD
     Route: 048
  5. LEVOXYL [Suspect]
     Dosage: 2X50 MCG, QD
     Route: 048
     Dates: start: 20060101
  6. LEVOXYL [Suspect]
     Dosage: ^DECREASED^
     Route: 048
  7. LEVOXYL [Suspect]
     Dosage: ^INCREASE TO THE PRESCRIBED DOSAGE^
     Route: 048
  8. LEVOXYL [Suspect]
     Dosage: 100 MCG, QD
     Route: 048
  9. CALCIUM [Concomitant]
     Indication: MINERAL SUPPLEMENTATION
     Route: 048
  10. VITAMIN B-12 [Concomitant]
     Indication: VITAMIN SUPPLEMENTATION
  11. ASCORBIC ACID [Concomitant]
     Indication: VITAMIN SUPPLEMENTATION
     Route: 048
  12. VITAMIN E [Concomitant]
     Indication: VITAMIN SUPPLEMENTATION
     Route: 048
  13. OMEGA 3 [Concomitant]
     Indication: MEDICAL DIET
     Route: 048
  14. ^STERILE VITAMINS^ [Concomitant]
     Indication: VITAMIN SUPPLEMENTATION
     Route: 048

REACTIONS (15)
  - ACNE [None]
  - CHEST PAIN [None]
  - DIZZINESS [None]
  - FEELING HOT [None]
  - HEART RATE INCREASED [None]
  - HYPERSENSITIVITY [None]
  - MUSCLE SPASMS [None]
  - MUSCLE TWITCHING [None]
  - MYALGIA [None]
  - NERVOUSNESS [None]
  - PALPITATIONS [None]
  - PARAESTHESIA [None]
  - PRURITUS [None]
  - RASH [None]
  - RASH MACULAR [None]
